FAERS Safety Report 7599687-4 (Version None)
Quarter: 2011Q3

REPORT INFORMATION
  Report Type: 
  Country: None (occurrence: None)
  Receive Date: 20110711
  Receipt Date: 20110627
  Transmission Date: 20111222
  Serious: Yes (Hospitalization)
  Sender: FDA-Public Use
  Company Number: US-ELI_LILLY_AND_COMPANY-US201106008472

PATIENT
  Age: 21 Year
  Sex: Male

DRUGS (2)
  1. STRATTERA [Suspect]
     Dosage: 80 MG, QD
     Dates: start: 20021101
  2. ZOLOFT [Concomitant]

REACTIONS (2)
  - BLOOD TRIGLYCERIDES INCREASED [None]
  - PANCREATITIS [None]
